FAERS Safety Report 22297370 (Version 1)
Quarter: 2023Q2

REPORT INFORMATION
  Report Type: Spontaneous
  Country: US (occurrence: US)
  Receive Date: 20230509
  Receipt Date: 20230509
  Transmission Date: 20230722
  Serious: No
  Sender: FDA-Public Use
  Company Number: US-BoehringerIngelheim-2023-BI-236092

PATIENT
  Sex: Female

DRUGS (2)
  1. CATAPRES [Suspect]
     Active Substance: CLONIDINE HYDROCHLORIDE
     Indication: Product used for unknown indication
  2. Genotropin Pen Cartrdges [Concomitant]
     Indication: Product used for unknown indication
     Dates: start: 20230502

REACTIONS (2)
  - Constipation [Unknown]
  - Poor quality sleep [Unknown]
